FAERS Safety Report 9809529 (Version 3)
Quarter: 2015Q4

REPORT INFORMATION
  Report Type: Spontaneous
  Country: US (occurrence: US)
  Receive Date: 20140110
  Receipt Date: 20151228
  Transmission Date: 20160305
  Serious: Yes (Other)
  Sender: FDA-Public Use
  Company Number: US-SANOFI-AVENTIS-2012SA030703

PATIENT
  Age: 60 Year

DRUGS (2)
  1. PLAVIX [Suspect]
     Active Substance: CLOPIDOGREL BISULFATE
     Indication: CEREBROVASCULAR ACCIDENT
     Route: 065
     Dates: start: 20061213, end: 20100129
  2. PLAVIX [Suspect]
     Active Substance: CLOPIDOGREL BISULFATE
     Indication: PROPHYLAXIS
     Route: 065
     Dates: start: 20061213, end: 20100129

REACTIONS (5)
  - Cerebral haemorrhage [Unknown]
  - Speech disorder [Unknown]
  - Gastrointestinal haemorrhage [Not Recovered/Not Resolved]
  - Gait disturbance [Unknown]
  - Musculoskeletal disorder [Unknown]

NARRATIVE: CASE EVENT DATE: 200905
